FAERS Safety Report 10661736 (Version 1)
Quarter: 2014Q4

REPORT INFORMATION
  Report Type: Spontaneous
  Country: US (occurrence: None)
  Receive Date: 20141217
  Receipt Date: 20141217
  Transmission Date: 20150529
  Serious: Yes (Life-Threatening)
  Sender: FDA-Public Use
  Company Number: None

PATIENT
  Age: 53 Year
  Sex: Male
  Weight: 121.34 kg

DRUGS (2)
  1. TECHNETIUM TC-99M MPI MDP [Suspect]
     Active Substance: TECHNETIUM TC-99M MEDRONATE
     Indication: SCAN SPLEEN
     Route: 042
     Dates: start: 20140611
  2. TECHNETIUM TC-99M MPI MDP [Suspect]
     Active Substance: TECHNETIUM TC-99M MEDRONATE
     Indication: LIVER SCAN
     Route: 042
     Dates: start: 20140611

REACTIONS (2)
  - Cardio-respiratory arrest [None]
  - Fall [None]

NARRATIVE: CASE EVENT DATE: 20140611
